FAERS Safety Report 10404509 (Version 1)
Quarter: 2014Q2

REPORT INFORMATION
  Report Type: Spontaneous
  Country: US (occurrence: None)
  Receive Date: 20140514
  Receipt Date: 20140514
  Transmission Date: 20141212
  Serious: Yes (Other)
  Sender: FDA-Public Use
  Company Number: 096252

PATIENT
  Sex: Male

DRUGS (3)
  1. CIMZIA [Suspect]
     Indication: CROHN^S DISEASE
     Dosage: (400MG 1X/2 WEEKS, PATIENT DISCARD SYRINGES)?01/01/2011 (TO UNKNOWN)
  2. METHADONE [Concomitant]
  3. UNKNOWN [Concomitant]

REACTIONS (4)
  - Crohn^s disease [None]
  - Anal fistula [None]
  - Haemorrhage [None]
  - Pain [None]
